FAERS Safety Report 11750734 (Version 1)
Quarter: 2015Q4

REPORT INFORMATION
  Report Type: Report from Study
  Country: US (occurrence: US)
  Receive Date: 20151118
  Receipt Date: 20151118
  Transmission Date: 20160304
  Serious: No
  Sender: FDA-Public Use
  Company Number: US-CELGENEUS-USA-2015101375

PATIENT

DRUGS (5)
  1. THALOMID [Suspect]
     Active Substance: THALIDOMIDE
     Indication: LIP SWELLING
  2. PREDNISONE. [Concomitant]
     Active Substance: PREDNISONE
     Indication: LIP SWELLING
     Route: 065
  3. THALOMID [Suspect]
     Active Substance: THALIDOMIDE
     Indication: MOUTH ULCERATION
     Route: 048
  4. THALOMID [Suspect]
     Active Substance: THALIDOMIDE
     Indication: OFF LABEL USE
  5. THALOMID [Suspect]
     Active Substance: THALIDOMIDE
     Indication: SWELLING FACE

REACTIONS (2)
  - Therapeutic response delayed [Recovering/Resolving]
  - Swelling [Unknown]
